FAERS Safety Report 5274720-3 (Version None)
Quarter: 2007Q1

REPORT INFORMATION
  Report Type: 
  Country: None (occurrence: None)
  Receive Date: 20070320
  Receipt Date: 20070313
  Transmission Date: 20070707
  Serious: Yes (Death, Hospitalization, Other)
  Sender: FDA-Public Use
  Company Number: 163-21880-06111136

PATIENT
  Age: 77 Year
  Sex: Female

DRUGS (1)
  1. REVLIMID [Suspect]
     Indication: MULTIPLE MYELOMA
     Dosage: 10 MG, QD X 21 DAYS, ORAL
     Route: 048
     Dates: start: 20060920, end: 20061117

REACTIONS (3)
  - DISEASE PROGRESSION [None]
  - PANCYTOPENIA [None]
  - RENAL FAILURE [None]
